FAERS Safety Report 8976923 (Version 1)
Quarter: 2012Q4

REPORT INFORMATION
  Report Type: 
  Country: US (occurrence: US)
  Receive Date: 20121220
  Receipt Date: 20121220
  Transmission Date: 20130627
  Serious: Yes (Hospitalization, Other)
  Sender: FDA-Public Use
  Company Number: PHEH2012US024899

PATIENT
  Sex: Male

DRUGS (1)
  1. TEGRETOL-XR [Suspect]
     Indication: HEAD INJURY
     Dosage: 600 mg, BID
     Route: 048

REACTIONS (2)
  - Pneumonia [Unknown]
  - Convulsion [Unknown]
